FAERS Safety Report 5632827-2 (Version None)
Quarter: 2008Q1

REPORT INFORMATION
  Report Type: 
  Country: None (occurrence: None)
  Receive Date: 20080221
  Receipt Date: 20080218
  Transmission Date: 20080703
  Serious: Yes (Life-Threatening, Hospitalization)
  Sender: FDA-Public Use
  Company Number: FR-BRISTOL-MYERS SQUIBB COMPANY-14079875

PATIENT
  Age: 37 Year
  Sex: Male

DRUGS (2)
  1. SUSTIVA [Suspect]
     Indication: HIV INFECTION
     Dates: start: 20071127, end: 20071205
  2. IOPAMIRON [Suspect]
     Indication: SCAN
     Dates: start: 20071205

REACTIONS (11)
  - ABDOMINAL PAIN [None]
  - CONJUNCTIVITIS [None]
  - CONTRAST MEDIA REACTION [None]
  - DIARRHOEA [None]
  - DIARRHOEA HAEMORRHAGIC [None]
  - DRUG HYPERSENSITIVITY [None]
  - ERYTHEMA [None]
  - EYELID OEDEMA [None]
  - HYPOVOLAEMIC SHOCK [None]
  - PYREXIA [None]
  - VOMITING [None]
